FAERS Safety Report 8551548-X (Version None)
Quarter: 2012Q3

REPORT INFORMATION
  Report Type: 
  Country: None (occurrence: None)
  Receive Date: 20120730
  Receipt Date: 20120321
  Transmission Date: 20120928
  Serious: No
  Sender: FDA-Public Use
  Company Number: US-ALLERGAN-1202738US

PATIENT
  Age: 65 Year
  Sex: Female

DRUGS (3)
  1. LATISSE [Suspect]
     Indication: HAIR GROWTH ABNORMAL
     Dosage: 2 GTT, QHS
     Route: 061
     Dates: start: 20120201, end: 20120226
  2. DETOX HERBS [Concomitant]
     Indication: PRODUCT USED FOR UNKNOWN INDICATION
  3. SYNTHROID [Concomitant]
     Indication: HYPOTHYROIDISM
     Dosage: UNK
     Route: 048

REACTIONS (6)
  - BLISTER [None]
  - INCORRECT ROUTE OF DRUG ADMINISTRATION [None]
  - PHOTOPHOBIA [None]
  - WRONG TECHNIQUE IN DRUG USAGE PROCESS [None]
  - SWELLING FACE [None]
  - DRUG ADMINISTERED AT INAPPROPRIATE SITE [None]
